FAERS Safety Report 4513207-X (Version None)
Quarter: 2004Q4

REPORT INFORMATION
  Report Type: 
  Country: None (occurrence: None)
  Receive Date: 20041124
  Receipt Date: 20041115
  Transmission Date: 20050328
  Serious: Yes (Life-Threatening)
  Sender: FDA-Public Use
  Company Number: 2004-BP-11961BP

PATIENT
  Age: 65 Year
  Sex: Male

DRUGS (7)
  1. MICARDIS [Suspect]
     Indication: CEREBROVASCULAR ACCIDENT PROPHYLAXIS
     Dates: start: 20020906, end: 20040723
  2. MICARDIS [Suspect]
     Indication: MYOCARDIAL INFARCTION
     Dates: start: 20020906, end: 20040723
  3. MICARDIS [Suspect]
     Indication: PROPHYLAXIS
     Dates: start: 20020906, end: 20040723
  4. RAMIPRIL CAPSULES (MICARDIS REFERENCE) (RAMIPRIL) (NR) [Suspect]
     Indication: CEREBROVASCULAR ACCIDENT PROPHYLAXIS
     Dates: start: 20020906, end: 20040723
  5. RAMIPRIL CAPSULES (MICARDIS REFERENCE) (RAMIPRIL) (NR) [Suspect]
     Indication: MYOCARDIAL INFARCTION
     Dates: start: 20020906, end: 20040723
  6. ASPENT (ACETYLSALICYLIC ACID) [Concomitant]
     Indication: PROPHYLAXIS
  7. SIMVASTATIN [Concomitant]

REACTIONS (2)
  - BLOOD PRESSURE DECREASED [None]
  - SYNCOPE [None]
